FAERS Safety Report 6494828-4 (Version None)
Quarter: 2009Q4

REPORT INFORMATION
  Report Type: 
  Country: None (occurrence: None)
  Receive Date: 20091214
  Receipt Date: 20090331
  Transmission Date: 20100525
  Serious: No
  Sender: FDA-Public Use
  Company Number: US-BRISTOL-MYERS SQUIBB COMPANY-14567135

PATIENT
  Age: 50 Year
  Sex: Female
  Weight: 89 kg

DRUGS (16)
  1. ABILIFY [Suspect]
     Indication: DEPRESSION
     Dates: start: 20080101
  2. ABILIFY [Suspect]
     Indication: ATTENTION DEFICIT/HYPERACTIVITY DISORDER
     Dates: start: 20080101
  3. LISINOPRIL [Concomitant]
  4. OXYBUTYNIN CHLORIDE [Concomitant]
  5. RANITIDINE [Concomitant]
  6. BUSPAR [Concomitant]
  7. NASONEX [Concomitant]
     Dosage: FORM NASAL SPRAY
  8. CALCIUM [Concomitant]
  9. VITAMIN D [Concomitant]
  10. PRILOSEC [Concomitant]
  11. TRAZODONE HCL [Concomitant]
  12. PRAVASTATIN [Concomitant]
  13. FIBER LAX [Concomitant]
  14. DOCUSATE SODIUM [Concomitant]
  15. LITHIUM [Concomitant]
  16. IBUPROFEN [Concomitant]

REACTIONS (4)
  - CONFUSIONAL STATE [None]
  - FEELING ABNORMAL [None]
  - MEMORY IMPAIRMENT [None]
  - TOOTH INFECTION [None]
